FAERS Safety Report 7437188-4 (Version None)
Quarter: 2011Q2

REPORT INFORMATION
  Report Type: 
  Country: None (occurrence: None)
  Receive Date: 20110426
  Receipt Date: 20091122
  Transmission Date: 20111010
  Serious: Yes (Other)
  Sender: FDA-Public Use
  Company Number: US-BAYER-2011-005939

PATIENT
  Age: 46 Year
  Sex: Male
  Weight: 77.098 kg

DRUGS (25)
  1. TRASYLOL [Suspect]
     Indication: PERICARDIAL REPAIR
  2. LASIX [Concomitant]
     Dosage: 40 MG, BID
     Dates: start: 20050401
  3. ALTACE [Concomitant]
     Dosage: 5 MG, UNK
     Route: 048
     Dates: start: 20070205
  4. ACETYLSALICYLIC ACID SRT [Concomitant]
     Dosage: 81 MG, UNK
     Route: 048
  5. AVELOX [Concomitant]
     Dosage: 400 MG, UNK
     Route: 042
     Dates: start: 20070625
  6. ASPIRIN [Concomitant]
     Dosage: 325 MG, UNK
     Route: 048
     Dates: start: 20070629
  7. LEVOFLOXACIN [Concomitant]
     Dosage: 500 MG, UNK
     Route: 048
     Dates: start: 20070629
  8. LACTULOSE [Concomitant]
     Dosage: 30 MG, UNK
     Route: 048
     Dates: start: 20070801
  9. AMICAR [Concomitant]
     Dosage: 10 ML RINCE AND SPIT
     Dates: start: 20071004
  10. FRESH FROZEN PLASMA [Concomitant]
     Dosage: 4 U, UNK
     Dates: start: 20071009
  11. DIGOXIN [Concomitant]
     Dosage: 250 MCG, UNK
     Route: 048
     Dates: start: 20050601
  12. LISINOPRIL [Concomitant]
     Dosage: 40 MG, UNK
     Route: 048
  13. TOPROL-XL [Concomitant]
     Dosage: 50 MG, UNK
     Route: 048
  14. LOVENOX [Concomitant]
     Dosage: 80 MG, BID
     Route: 058
  15. PLATELETS [Concomitant]
     Dosage: 2 U, UNK
     Dates: start: 20071009
  16. LEXAPRO [Concomitant]
     Dosage: 10 MG, UNK
     Route: 048
     Dates: start: 20070928
  17. AMICAR [Concomitant]
     Dosage: 10 ML RINCE AND SPIT
     Dates: start: 20071003
  18. LEXAPRO [Concomitant]
     Dosage: 200 MG, UNK
     Route: 048
  19. VANCOMYCIN [Concomitant]
     Route: 042
  20. TRASYLOL [Suspect]
     Indication: MITRAL VALVE REPLACEMENT
     Dosage: UNK
     Dates: start: 20071009
  21. TRASYLOL [Suspect]
     Indication: TRICUSPID VALVE REPAIR
  22. DOXYCYCLINE [Concomitant]
     Indication: ABSCESS LIMB
     Dosage: UNK
     Route: 048
     Dates: start: 20070810
  23. DILTIAZEM [Concomitant]
     Dosage: 120 MG, UNK
     Route: 048
     Dates: start: 20070629
  24. POTASSIUM [Concomitant]
     Dosage: 20 MEQ, UNK
     Route: 048
     Dates: start: 20050601
  25. CIPRO [Concomitant]
     Indication: URINARY TRACT INFECTION
     Dosage: 500 MG, UNK
     Route: 048
     Dates: start: 20071003

REACTIONS (10)
  - UNEVALUABLE EVENT [None]
  - RENAL FAILURE [None]
  - RENAL IMPAIRMENT [None]
  - RENAL INJURY [None]
  - FEAR [None]
  - INJURY [None]
  - ANXIETY [None]
  - EMOTIONAL DISTRESS [None]
  - STRESS [None]
  - PAIN [None]
